FAERS Safety Report 7645856-4 (Version None)
Quarter: 2011Q3

REPORT INFORMATION
  Report Type: 
  Country: None (occurrence: None)
  Receive Date: 20110729
  Receipt Date: 20110722
  Transmission Date: 20111222
  Serious: Yes (Death, Other)
  Sender: FDA-Public Use
  Company Number: PHHY2011JP67300

PATIENT
  Sex: Male
  Weight: 62 kg

DRUGS (25)
  1. IMATINIB MESYLATE [Suspect]
     Dosage: 600 MG, DAILY
     Route: 048
     Dates: start: 20080519, end: 20080615
  2. VINCRISTINE SULFATE [Concomitant]
     Indication: ACUTE LYMPHOCYTIC LEUKAEMIA
     Dosage: 2 MG, UNK
     Route: 041
     Dates: start: 20080301
  3. METHOTREXATE [Concomitant]
     Dosage: 15 MG, UNK
  4. METHOTREXATE [Concomitant]
     Dosage: 15 MG, UNK
     Dates: end: 20080616
  5. CYTARABINE [Concomitant]
     Dosage: 3520 MG, UNK
  6. URSO 250 [Concomitant]
     Indication: PROPHYLAXIS
     Dosage: 300 MG, UNK
     Route: 048
     Dates: start: 20080301
  7. IMATINIB MESYLATE [Suspect]
     Indication: ACUTE LYMPHOCYTIC LEUKAEMIA
     Dosage: 400 MG, DAILY
     Route: 048
     Dates: start: 20080301, end: 20080303
  8. IMATINIB MESYLATE [Suspect]
     Dosage: 600 MG, DAILY
     Route: 048
     Dates: start: 20080304, end: 20080418
  9. PAXIL [Concomitant]
     Indication: PROPHYLAXIS
     Dosage: 30 MG, UNK
     Route: 048
     Dates: start: 20080301
  10. DECADRON [Concomitant]
     Dosage: 4 MG, UNK
     Dates: start: 20080317
  11. DECADRON [Concomitant]
     Dosage: 4 MG, UNK
  12. DEXAMETHASONE [Concomitant]
     Indication: ACUTE LYMPHOCYTIC LEUKAEMIA
     Dosage: 4 MG, UNK
     Dates: start: 20080616, end: 20080616
  13. LASIX [Concomitant]
     Indication: PROPHYLAXIS
     Dosage: 10 MG, UNK
     Route: 048
     Dates: start: 20080301
  14. IMATINIB MESYLATE [Suspect]
     Dosage: 600 MG, DAILY
     Route: 048
     Dates: start: 20080714, end: 20080810
  15. CYTARABINE [Concomitant]
     Dosage: 40 MG, UNK
     Dates: end: 20080616
  16. METHOTREXATE [Concomitant]
     Indication: ACUTE LYMPHOCYTIC LEUKAEMIA
     Dosage: 15 MG, UNK
     Dates: start: 20080317
  17. CYTARABINE [Concomitant]
     Indication: ACUTE LYMPHOCYTIC LEUKAEMIA
     Dosage: 40 MG, UNK
     Dates: start: 20080317
  18. DECADRON [Concomitant]
     Dosage: 4 MG, UNK
     Dates: end: 20080519
  19. METHOTREXATE [Concomitant]
     Dosage: 15 MG, UNK
  20. CYTARABINE [Concomitant]
     Dosage: 40 MG, UNK
  21. SPRYCEL [Suspect]
     Indication: ACUTE LYMPHOCYTIC LEUKAEMIA
     Dates: start: 20090317
  22. VINCRISTINE SULFATE [Concomitant]
     Dosage: 1 MG, UNK
     Route: 041
     Dates: end: 20080308
  23. METHOTREXATE [Concomitant]
     Dosage: 1765 MG, UNK
     Route: 041
  24. CYTARABINE [Concomitant]
     Dosage: 40 MG, UNK
  25. METHYLPREDNISOLONE [Concomitant]
     Indication: ACUTE LYMPHOCYTIC LEUKAEMIA
     Dosage: 100 MG, UNK
     Route: 041
     Dates: start: 20080421, end: 20080423

REACTIONS (2)
  - DEATH [None]
  - ACUTE MYELOID LEUKAEMIA [None]
